FAERS Safety Report 13635168 (Version 1)
Quarter: 2017Q2

REPORT INFORMATION
  Report Type: Spontaneous
  Country: FR (occurrence: FR)
  Receive Date: 20170609
  Receipt Date: 20170609
  Transmission Date: 20170830
  Serious: Yes (Hospitalization)
  Sender: FDA-Public Use
  Company Number: FR-AUROBINDO-AUR-APL-2017-35223

PATIENT
  Age: 51 Year
  Sex: Male

DRUGS (1)
  1. PERINDOPRIL ARROW LAB TABLETS 4MG [Suspect]
     Active Substance: PERINDOPRIL ERBUMINE
     Indication: PRODUCT USED FOR UNKNOWN INDICATION
     Dosage: 1 DF, DAILY
     Route: 048
     Dates: end: 20170424

REACTIONS (3)
  - Salivary hypersecretion [Recovered/Resolved]
  - Angioedema [Recovered/Resolved]
  - Macroglossia [None]

NARRATIVE: CASE EVENT DATE: 20170423
